FAERS Safety Report 5332817-3 (Version None)
Quarter: 2007Q2

REPORT INFORMATION
  Report Type: 
  Country: None (occurrence: None)
  Receive Date: 20070523
  Receipt Date: 20070514
  Transmission Date: 20071010
  Serious: Yes (Hospitalization, Other)
  Sender: FDA-Public Use
  Company Number: US-PFIZER INC-2007040061

PATIENT
  Sex: Male

DRUGS (3)
  1. LYRICA [Suspect]
     Indication: TRIGEMINAL NEURALGIA
  2. LISINOPRIL [Concomitant]
  3. OMEPRAZOLE [Concomitant]

REACTIONS (1)
  - SKIN DISORDER [None]
